FAERS Safety Report 11133610 (Version 3)
Quarter: 2018Q2

REPORT INFORMATION
  Report Type: Spontaneous
  Country: US (occurrence: US)
  Receive Date: 20150523
  Receipt Date: 20180524
  Transmission Date: 20180711
  Serious: Yes (Death, Hospitalization)
  Sender: FDA-Public Use
  Company Number: US-009507513-1305USA010047

PATIENT
  Sex: Male

DRUGS (1)
  1. VARIVAX [Suspect]
     Active Substance: VARICELLA-ZOSTER VIRUS STRAIN OKA/MERCK LIVE ANTIGEN
     Indication: PROPHYLAXIS

REACTIONS (6)
  - Malaise [Unknown]
  - Back pain [Unknown]
  - Varicella [Fatal]
  - Headache [Unknown]
  - Abdominal pain [Unknown]
  - Pyrexia [Unknown]
